FAERS Safety Report 20304519 (Version 1)
Quarter: 2022Q1

REPORT INFORMATION
  Report Type: Spontaneous
  Country: US (occurrence: None)
  Receive Date: 20220106
  Receipt Date: 20220106
  Transmission Date: 20220423
  Serious: Yes (Hospitalization)
  Sender: FDA-Public Use
  Company Number: None

PATIENT
  Age: 62 Year
  Sex: Female
  Weight: 119 kg

DRUGS (2)
  1. CISPLATIN [Suspect]
     Active Substance: CISPLATIN
     Dates: end: 20211210
  2. ALIMTA [Suspect]
     Active Substance: PEMETREXED DISODIUM
     Dates: end: 20211210

REACTIONS (7)
  - Anaemia [None]
  - Platelet count decreased [None]
  - Diarrhoea [None]
  - Nausea [None]
  - Vomiting [None]
  - Hypokalaemia [None]
  - Neutrophil count decreased [None]

NARRATIVE: CASE EVENT DATE: 20211226
